APPROVED DRUG PRODUCT: BRISDELLE
Active Ingredient: PAROXETINE MESYLATE
Strength: EQ 7.5MG BASE
Dosage Form/Route: CAPSULE;ORAL
Application: N204516 | Product #001 | TE Code: AB
Applicant: LEGACY PHARMA INC
Approved: Jun 28, 2013 | RLD: Yes | RS: Yes | Type: RX

PATENTS:
Patent 8946251 | Expires: Aug 4, 2026
Patent 9393237 | Expires: Aug 4, 2026
Patent 8658663 | Expires: Apr 6, 2029